FAERS Safety Report 11051124 (Version 1)
Quarter: 2015Q2

REPORT INFORMATION
  Report Type: Spontaneous
  Country: US (occurrence: None)
  Receive Date: 20150420
  Receipt Date: 20150420
  Transmission Date: 20150821
  Serious: Yes (Life-Threatening, Hospitalization, Disabling, Other)
  Sender: FDA-Public Use
  Company Number: None

PATIENT
  Age: 21 Day
  Sex: Male

DRUGS (4)
  1. ALLEGRA [Suspect]
     Active Substance: FEXOFENADINE HYDROCHLORIDE
     Indication: ASTHMA
     Dosage: 1 PILL, ONCE DAILY, TAKEN BY MOUTH
     Route: 048
     Dates: start: 20150406, end: 20150409
  2. DULERA [Concomitant]
     Active Substance: FORMOTEROL FUMARATE DIHYDRATE\MOMETASONE FUROATE
  3. ALBUTEROL. [Concomitant]
     Active Substance: ALBUTEROL
  4. ALLEGRA [Suspect]
     Active Substance: FEXOFENADINE HYDROCHLORIDE
     Indication: HYPERSENSITIVITY
     Dosage: 1 PILL, ONCE DAILY, TAKEN BY MOUTH
     Route: 048
     Dates: start: 20150406, end: 20150409

REACTIONS (17)
  - Feeling of despair [None]
  - Suicidal ideation [None]
  - Depression [None]
  - Abnormal dreams [None]
  - Chills [None]
  - Nervousness [None]
  - Feeling of body temperature change [None]
  - Feeling jittery [None]
  - Cold sweat [None]
  - Mood swings [None]
  - Lethargy [None]
  - Decreased appetite [None]
  - Hyperhidrosis [None]
  - Insomnia [None]
  - Anxiety [None]
  - Tachyphrenia [None]
  - Asthma [None]

NARRATIVE: CASE EVENT DATE: 20150406
